FAERS Safety Report 6929612-8 (Version None)
Quarter: 2010Q3

REPORT INFORMATION
  Report Type: 
  Country: None (occurrence: None)
  Receive Date: 20100818
  Receipt Date: 20100805
  Transmission Date: 20110219
  Serious: Yes (Hospitalization)
  Sender: FDA-Public Use
  Company Number: KR-CELGENEUS-286-C5013-10080312

PATIENT
  Sex: Male
  Weight: 58.2 kg

DRUGS (16)
  1. LENALIDOMIDE [Suspect]
     Indication: MULTIPLE MYELOMA
     Route: 048
     Dates: start: 20100603
  2. LENALIDOMIDE [Suspect]
     Route: 048
     Dates: start: 20100708, end: 20100728
  3. LENALIDOMIDE [Suspect]
     Route: 048
     Dates: end: 20100805
  4. DEXAMETHASONE [Suspect]
     Indication: MULTIPLE MYELOMA
     Route: 065
     Dates: start: 20100603
  5. DEXAMETHASONE [Suspect]
     Route: 065
     Dates: start: 20100708, end: 20100729
  6. DEXAMETHASONE [Suspect]
     Route: 065
     Dates: end: 20100805
  7. ASPARIN [Concomitant]
     Indication: THROMBOSIS PROPHYLAXIS
     Route: 048
     Dates: start: 20100603
  8. CURAN [Concomitant]
     Indication: GASTRITIS PROPHYLAXIS
     Route: 048
     Dates: start: 20100603
  9. AMBROXOL [Concomitant]
     Route: 051
     Dates: start: 20100629, end: 20100629
  10. CEFTRIAXONE [Concomitant]
     Route: 051
     Dates: start: 20100629, end: 20100629
  11. BANAN [Concomitant]
     Route: 048
     Dates: start: 20100630, end: 20100730
  12. GASTER [Concomitant]
     Indication: ABDOMINAL PAIN
     Route: 048
     Dates: start: 20100630, end: 20100706
  13. GASTER [Concomitant]
     Route: 048
     Dates: start: 20100730, end: 20100801
  14. GASTER [Concomitant]
     Route: 048
     Dates: start: 20100801, end: 20100802
  15. DIAMICRON [Concomitant]
     Indication: DIABETES MELLITUS
     Route: 048
     Dates: start: 20100715
  16. PANORIN [Concomitant]
     Indication: MULTIPLE MYELOMA
     Route: 051
     Dates: start: 20100722, end: 20100722

REACTIONS (2)
  - DIARRHOEA [None]
  - ILEUS PARALYTIC [None]
